FAERS Safety Report 8262811 (Version 4)
Quarter: 2013Q1

REPORT INFORMATION
  Report Type: Spontaneous
  Country: US (occurrence: US)
  Receive Date: 20111124
  Receipt Date: 20130115
  Transmission Date: 20140127
  Serious: Yes (Other)
  Sender: FDA-Public Use
  Company Number: US-ROCHE-1015952

PATIENT
  Age: 22 Year
  Sex: Male
  Weight: 70.37 kg

DRUGS (1)
  1. ACCUTANE [Suspect]
     Indication: ACNE CYSTIC
     Route: 065
     Dates: start: 19851201, end: 19860404

REACTIONS (4)
  - Colitis ulcerative [Unknown]
  - Injury [Unknown]
  - Inflammatory bowel disease [Unknown]
  - Headache [Unknown]
